FAERS Safety Report 6896564-9 (Version None)
Quarter: 2010Q3

REPORT INFORMATION
  Report Type: 
  Country: None (occurrence: None)
  Receive Date: 20100802
  Receipt Date: 20090320
  Transmission Date: 20110219
  Serious: No
  Sender: FDA-Public Use
  Company Number: US-PFIZER INC-2009188436

PATIENT
  Age: 78 Year
  Sex: Female

DRUGS (1)
  1. IRINOTECAN HCL [Suspect]

REACTIONS (3)
  - DISEASE PROGRESSION [None]
  - DRUG INTOLERANCE [None]
  - NEOPLASM MALIGNANT [None]
